FAERS Safety Report 7173848-0 (Version None)
Quarter: 2010Q4

REPORT INFORMATION
  Report Type: 
  Country: None (occurrence: None)
  Receive Date: 20101219
  Receipt Date: 20100311
  Transmission Date: 20110411
  Serious: No
  Sender: FDA-Public Use
  Company Number: US-AMGEN-KDL399098

PATIENT

DRUGS (2)
  1. ENBREL [Suspect]
     Indication: RHEUMATOID ARTHRITIS
     Dosage: UNK UNK, UNK
     Dates: start: 20100309
  2. METHOTREXATE [Concomitant]
     Dosage: UNK UNK, UNK

REACTIONS (2)
  - DIARRHOEA [None]
  - PYREXIA [None]
